FAERS Safety Report 25257924 (Version 1)
Quarter: 2025Q2

REPORT INFORMATION
  Report Type: Spontaneous
  Country: US (occurrence: US)
  Receive Date: 20250501
  Receipt Date: 20250501
  Transmission Date: 20250717
  Serious: No
  Sender: AMGEN
  Company Number: US-AMGEN-USASP2025083080

PATIENT

DRUGS (1)
  1. NEUPOGEN [Suspect]
     Active Substance: FILGRASTIM
     Indication: Idiopathic neutropenia
     Dosage: UNK, QD
     Route: 065

REACTIONS (3)
  - Bone pain [Unknown]
  - Aphthous ulcer [Unknown]
  - Intentional product misuse [Unknown]
